FAERS Safety Report 8148129-9 (Version None)
Quarter: 2012Q1

REPORT INFORMATION
  Report Type: 
  Country: None (occurrence: None)
  Receive Date: 20120218
  Receipt Date: 20110427
  Transmission Date: 20120608
  Serious: No
  Sender: FDA-Public Use
  Company Number: US-ALLERGAN-1105836US

PATIENT
  Age: 44 Year
  Sex: Female

DRUGS (1)
  1. BOTOX COSMETIC [Suspect]
     Indication: SKIN WRINKLING
     Dosage: 39 UNITS, SINGLE
     Route: 030
     Dates: start: 20110326, end: 20110326

REACTIONS (6)
  - DRY SKIN [None]
  - SWELLING FACE [None]
  - EYE SWELLING [None]
  - LIP SWELLING [None]
  - URTICARIA [None]
  - SKIN EXFOLIATION [None]
